FAERS Safety Report 6806760-4 (Version None)
Quarter: 2010Q2

REPORT INFORMATION
  Report Type: 
  Country: None (occurrence: None)
  Receive Date: 20100629
  Receipt Date: 20080616
  Transmission Date: 20101027
  Serious: No
  Sender: FDA-Public Use
  Company Number: US-PFIZER INC-2008028464

PATIENT
  Sex: Male
  Weight: 140.61 kg

DRUGS (1)
  1. TIKOSYN [Suspect]
     Indication: HEART RATE IRREGULAR
     Dates: start: 20071101

REACTIONS (8)
  - ATRIAL FIBRILLATION [None]
  - BLOOD TEST ABNORMAL [None]
  - BRONCHITIS [None]
  - DISTURBANCE IN ATTENTION [None]
  - DIZZINESS [None]
  - FATIGUE [None]
  - HEADACHE [None]
  - MENTAL IMPAIRMENT [None]
